FAERS Safety Report 4884524-9 (Version None)
Quarter: 2005Q4

REPORT INFORMATION
  Report Type: 
  Country: None (occurrence: None)
  Receive Date: 20051201
  Receipt Date: 20050913
  Transmission Date: 20060501
  Serious: No
  Sender: FDA-Public Use
  Company Number: 2005PV002037

PATIENT
  Age: 69 Year
  Sex: Female
  Weight: 116.1208 kg

DRUGS (4)
  1. BYETTA [Suspect]
     Indication: DIABETES MELLITUS NON-INSULIN-DEPENDENT
     Dosage: 10 MCG;BID;SC
     Route: 058
     Dates: start: 20050816
  2. METFORMIN [Concomitant]
  3. GLUCOTROL XL [Concomitant]
  4. METAPROLOL [Concomitant]

REACTIONS (9)
  - DECREASED APPETITE [None]
  - DIARRHOEA [None]
  - DYSPEPSIA [None]
  - ERUCTATION [None]
  - HEADACHE [None]
  - HICCUPS [None]
  - NAUSEA [None]
  - TINNITUS [None]
  - WEIGHT DECREASED [None]
